FAERS Safety Report 9889659 (Version 1)
Quarter: 2014Q1

REPORT INFORMATION
  Report Type: Spontaneous
  Country: US (occurrence: US)
  Receive Date: 20140211
  Receipt Date: 20140211
  Transmission Date: 20141002
  Serious: No
  Sender: FDA-Public Use
  Company Number: US-PFIZER INC-2014036811

PATIENT
  Age: 58 Year
  Sex: Male
  Weight: 83.45 kg

DRUGS (3)
  1. GABAPENTIN [Suspect]
     Indication: DIABETIC NEUROPATHY
     Dosage: 300 MG (BY SPLITTING 600MG TABLET INTO HALF), 3X/DAY
     Route: 048
     Dates: start: 2013
  2. CLOBETASOL [Concomitant]
     Indication: PSORIASIS
     Dosage: UNK
  3. INSULIN [Concomitant]
     Indication: DIABETES MELLITUS
     Dosage: UNK

REACTIONS (6)
  - Drug ineffective for unapproved indication [Unknown]
  - Intentional drug misuse [Unknown]
  - Psoriasis [Unknown]
  - Therapeutic response unexpected [Unknown]
  - Erythema [Unknown]
  - Skin exfoliation [Unknown]
